FAERS Safety Report 8690970 (Version 3)
Quarter: 2013Q4

REPORT INFORMATION
  Report Type: Spontaneous
  Country: JP (occurrence: JP)
  Receive Date: 20120730
  Receipt Date: 20131031
  Transmission Date: 20140711
  Serious: Yes (Other)
  Sender: FDA-Public Use
  Company Number: JP-MSD-1207JPN009560

PATIENT
  Age: 76 Year
  Sex: Female

DRUGS (1)
  1. GASTER [Suspect]
     Dosage: UNK MG, UNK
     Route: 048

REACTIONS (1)
  - Drug reaction with eosinophilia and systemic symptoms [Recovered/Resolved]
